FAERS Safety Report 4932520-5 (Version None)
Quarter: 2006Q1

REPORT INFORMATION
  Report Type: 
  Country: None (occurrence: None)
  Receive Date: 20060301
  Receipt Date: 20050922
  Transmission Date: 20060701
  Serious: Yes (Other)
  Sender: FDA-Public Use
  Company Number: 2005133299

PATIENT
  Age: 25 Year
  Sex: Male

DRUGS (1)
  1. ZOLOFT [Suspect]
     Indication: ILL-DEFINED DISORDER
     Dosage: 100 MG (, 1 IN 1 D), ORAL
     Route: 048
     Dates: start: 20050401

REACTIONS (1)
  - RHABDOMYOLYSIS [None]
